FAERS Safety Report 4663885-X (Version None)
Quarter: 2005Q2

REPORT INFORMATION
  Report Type: 
  Country: None (occurrence: None)
  Receive Date: 20050516
  Receipt Date: 20050503
  Transmission Date: 20051028
  Serious: Yes (Other)
  Sender: FDA-Public Use
  Company Number: 2005070718

PATIENT
  Age: 46 Year
  Sex: Female
  Weight: 68.0396 kg

DRUGS (3)
  1. CELEBREX [Suspect]
     Indication: ROTATOR CUFF SYNDROME
     Dosage: 200 MG (200 MG, 1 IN 1 D), ORAL
     Route: 048
     Dates: start: 20000101
  2. FEXOFENADINE HYDROCHLORIDE [Concomitant]
  3. SERETIDE MITE 9FLUTICASONE PROPIOANTE, SALMETEROL XINAFOATE0 [Concomitant]

REACTIONS (2)
  - ARTHROSCOPIC SURGERY [None]
  - SHOULDER ARTHROPLASTY [None]
